FAERS Safety Report 6530899-4 (Version None)
Quarter: 2010Q1

REPORT INFORMATION
  Report Type: 
  Country: None (occurrence: None)
  Receive Date: 20100108
  Receipt Date: 20090819
  Transmission Date: 20100710
  Serious: No
  Sender: FDA-Public Use
  Company Number: A0785877A

PATIENT
  Age: 60 Year
  Sex: Male

DRUGS (5)
  1. LOVAZA [Suspect]
     Dosage: 2TAB TWICE PER DAY
     Route: 048
     Dates: start: 20081001
  2. LIPITOR [Concomitant]
  3. ACCUPRIL [Concomitant]
  4. NORVASC [Concomitant]
  5. METFORMIN HYDROCHLORIDE [Concomitant]

REACTIONS (5)
  - ABDOMINAL PAIN UPPER [None]
  - DECREASED APPETITE [None]
  - MALAISE [None]
  - NAUSEA [None]
  - PRODUCT QUALITY ISSUE [None]
